FAERS Safety Report 9413770 (Version 2)
Quarter: 2013Q3

REPORT INFORMATION
  Report Type: Report from Study
  Country: IT (occurrence: IT)
  Receive Date: 20130722
  Receipt Date: 20130731
  Transmission Date: 20140515
  Serious: Yes (Hospitalization)
  Sender: FDA-Public Use
  Company Number: IT-ROCHE-1251474

PATIENT
  Age: 3 Year
  Sex: Male
  Weight: 17.5 kg

DRUGS (4)
  1. BEVACIZUMAB [Suspect]
     Indication: BRAIN NEOPLASM MALIGNANT
     Dosage: DATE OF LAST DOSE PRIOR TO SAE: 10/JUL/2013
     Route: 042
     Dates: start: 20130515
  2. TEMOZOLOMIDE [Suspect]
     Indication: BRAIN NEOPLASM MALIGNANT
     Dosage: DATE OF LAST DOSE PRIOR TO SAE: 26/JUN/2013
     Route: 048
     Dates: start: 20130515
  3. AUGMENTIN [Concomitant]
     Indication: PROPHYLAXIS
     Dosage: 750 MG X 2
     Route: 065
     Dates: start: 20130714, end: 20130718
  4. ZOFRAN [Concomitant]
     Indication: PROPHYLAXIS
     Route: 065
     Dates: start: 20130515, end: 20130626

REACTIONS (1)
  - Pyrexia [Unknown]
